FAERS Safety Report 10452324 (Version 1)
Quarter: 2014Q3

REPORT INFORMATION
  Report Type: Spontaneous
  Country: JP (occurrence: JP)
  Receive Date: 20140915
  Receipt Date: 20140915
  Transmission Date: 20150326
  Serious: Yes (Other)
  Sender: FDA-Public Use
  Company Number: PHHY2013JP162666

PATIENT
  Age: 45 Year
  Sex: Female

DRUGS (1)
  1. RAD 666 [Suspect]
     Active Substance: EVEROLIMUS
     Indication: LIPOSARCOMA
     Dosage: 10 MG
     Dates: start: 20111220

REACTIONS (5)
  - Disease progression [Unknown]
  - Genital haemorrhage [Recovering/Resolving]
  - Stomatitis [Recovering/Resolving]
  - Liposarcoma [Unknown]
  - Malaise [Recovering/Resolving]
